FAERS Safety Report 20299012 (Version 1)
Quarter: 2022Q1

REPORT INFORMATION
  Report Type: Spontaneous
  Country: US (occurrence: US)
  Receive Date: 20220105
  Receipt Date: 20220105
  Transmission Date: 20220424
  Serious: Yes (Death, Life-Threatening, Hospitalization, Other)
  Sender: FDA-Public Use
  Company Number: US-TORRENT-00011021

PATIENT
  Age: 31 Year
  Sex: Female

DRUGS (4)
  1. CARBAMAZEPINE [Suspect]
     Active Substance: CARBAMAZEPINE
     Indication: Seizure
     Dosage: UNKNOWN
     Route: 048
  2. LACOSAMIDE [Concomitant]
     Active Substance: LACOSAMIDE
     Indication: Seizure
     Dosage: UNKNOWN
     Route: 048
  3. LEVETIRACETAM [Concomitant]
     Active Substance: LEVETIRACETAM
     Indication: Seizure
     Dosage: UNKNOWN
     Route: 048
  4. ACYCLOVIR [Concomitant]
     Active Substance: ACYCLOVIR
     Indication: Meningoencephalitis herpetic
     Dosage: UNKNOWN
     Route: 065

REACTIONS (4)
  - Toxic epidermal necrolysis [Fatal]
  - Stevens-Johnson syndrome [Fatal]
  - Lactic acidosis [Fatal]
  - Staphylococcal infection [Fatal]
